FAERS Safety Report 6920892-1 (Version None)
Quarter: 2010Q3

REPORT INFORMATION
  Report Type: 
  Country: None (occurrence: None)
  Receive Date: 20100812
  Receipt Date: 20100809
  Transmission Date: 20110219
  Serious: Yes (Hospitalization)
  Sender: FDA-Public Use
  Company Number: GB-AMGEN-KDC430022

PATIENT
  Sex: Female

DRUGS (11)
  1. VECTIBIX [Suspect]
     Indication: GASTROOESOPHAGEAL CANCER
     Dates: start: 20100501
  2. EPIRUBICIN [Suspect]
     Dates: start: 20100501
  3. OXALIPLATIN [Suspect]
     Dates: start: 20100501
  4. CAPECITABINE [Suspect]
     Dates: start: 20100501
  5. BISOPROLOL [Concomitant]
  6. CANDESARTAN [Concomitant]
  7. OMEPRAZOLE [Concomitant]
  8. ASPIRIN [Concomitant]
  9. MULTI-VITAMINS [Concomitant]
  10. VITAMIN B COMPLEX CAP [Concomitant]
  11. ROSUVASTATIN [Concomitant]

REACTIONS (1)
  - NEUTROPENIC SEPSIS [None]
